FAERS Safety Report 7419644-8 (Version None)
Quarter: 2011Q2

REPORT INFORMATION
  Report Type: 
  Country: None (occurrence: None)
  Receive Date: 20110418
  Receipt Date: 20110411
  Transmission Date: 20111010
  Serious: Yes (Death, Hospitalization, Other)
  Sender: FDA-Public Use
  Company Number: CA-US-EMD SERONO, INC.-230304J10CAN

PATIENT
  Sex: Female

DRUGS (4)
  1. ADVIL LIQUI-GELS [Concomitant]
     Indication: PREMEDICATION
  2. REBIF [Suspect]
     Indication: RELAPSING-REMITTING MULTIPLE SCLEROSIS
  3. REBIF [Suspect]
     Dates: start: 20100315, end: 20101213
  4. ACETAMINOPHEN [Concomitant]
     Indication: PREMEDICATION

REACTIONS (6)
  - BALANCE DISORDER [None]
  - FEELING COLD [None]
  - MULTIPLE SCLEROSIS RELAPSE [None]
  - ENCEPHALITIS [None]
  - HYPOAESTHESIA [None]
  - IMMUNODEFICIENCY [None]
